FAERS Safety Report 9572649 (Version 1)
Quarter: 2013Q3

REPORT INFORMATION
  Report Type: Spontaneous
  Country: DE (occurrence: None)
  Receive Date: 20130927
  Receipt Date: 20130927
  Transmission Date: 20140515
  Serious: No
  Sender: FDA-Public Use
  Company Number: B0925432A

PATIENT
  Sex: 0

DRUGS (2)
  1. PAZOPANIB [Suspect]
     Indication: TRANSITIONAL CELL CARCINOMA METASTATIC
  2. VINFLUNINE [Suspect]
     Indication: TRANSITIONAL CELL CARCINOMA METASTATIC

REACTIONS (1)
  - Gamma-glutamyltransferase increased [None]
